FAERS Safety Report 7806539-0 (Version None)
Quarter: 2011Q4

REPORT INFORMATION
  Report Type: 
  Country: None (occurrence: None)
  Receive Date: 20111011
  Receipt Date: 20110926
  Transmission Date: 20120403
  Serious: Yes (Hospitalization)
  Sender: FDA-Public Use
  Company Number: US-TYCO HEALTHCARE/MALLINCKRODT-T201101691

PATIENT
  Sex: Female

DRUGS (1)
  1. OPTIRAY 160 [Suspect]
     Indication: COMPUTERISED TOMOGRAM
     Dosage: 100 ML, SINGLE
     Route: 042
     Dates: start: 20110901, end: 20110901

REACTIONS (5)
  - DYSGEUSIA [None]
  - DROOLING [None]
  - PHARYNGEAL OEDEMA [None]
  - UNRESPONSIVE TO STIMULI [None]
  - HYPOAESTHESIA [None]
